FAERS Safety Report 4907095-7 (Version None)
Quarter: 2006Q1

REPORT INFORMATION
  Report Type: 
  Country: None (occurrence: None)
  Receive Date: 20060206
  Receipt Date: 20060120
  Transmission Date: 20060701
  Serious: Yes (Death, Other)
  Sender: FDA-Public Use
  Company Number: 2006011058

PATIENT
  Age: 84 Year
  Sex: Female

DRUGS (4)
  1. ZYVOX [Suspect]
     Indication: PNEUMONIA
  2. COLISTIN (COLISTIN) [Concomitant]
  3. MERONEM (MEROPENEM) [Concomitant]
  4. VANCOMYCIN (VANCOMYCI) [Concomitant]

REACTIONS (5)
  - INCISION SITE HAEMORRHAGE [None]
  - OBSTRUCTIVE AIRWAYS DISORDER [None]
  - SECRETION DISCHARGE [None]
  - THROMBOCYTOPENIA [None]
  - THROMBOSIS [None]
